FAERS Safety Report 25122860 (Version 2)
Quarter: 2025Q2

REPORT INFORMATION
  Report Type: Spontaneous
  Country: BE (occurrence: BE)
  Receive Date: 20250326
  Receipt Date: 20250507
  Transmission Date: 20250716
  Serious: Yes (Hospitalization, Other)
  Sender: NOVARTIS
  Company Number: BE-002147023-NVSC2025BE048638

PATIENT
  Age: 9 Year
  Sex: Male

DRUGS (2)
  1. ILARIS [Suspect]
     Active Substance: CANAKINUMAB
     Indication: Interstitial lung disease
     Dosage: 150 MG, Q4W (4.5 MG/KG/MONTH)
     Route: 058
     Dates: start: 20240426
  2. ILARIS [Suspect]
     Active Substance: CANAKINUMAB
     Dosage: 250 MG, Q4W, (8 MG/KG/MONTH)
     Route: 058
     Dates: start: 202502, end: 20250318

REACTIONS (15)
  - Haemophagocytic lymphohistiocytosis [Unknown]
  - Haemophagocytic lymphohistiocytosis [Unknown]
  - Haemophagocytic lymphohistiocytosis [Unknown]
  - Interstitial lung disease [Unknown]
  - Growth failure [Unknown]
  - Pulmonary hypertension [Unknown]
  - Pulmonary hypertension [Unknown]
  - Adenoviral upper respiratory infection [Unknown]
  - Rhinovirus infection [Unknown]
  - Influenza [Unknown]
  - Clubbing [Unknown]
  - Haemophagocytic lymphohistiocytosis [Unknown]
  - Viral infection [Unknown]
  - Respiratory syncytial virus infection [Unknown]
  - Off label use [Unknown]

NARRATIVE: CASE EVENT DATE: 20240801
